FAERS Safety Report 13571542 (Version 4)
Quarter: 2018Q2

REPORT INFORMATION
  Report Type: Spontaneous
  Country: US (occurrence: US)
  Receive Date: 20170523
  Receipt Date: 20180427
  Transmission Date: 20180711
  Serious: No
  Sender: FDA-Public Use
  Company Number: US-PFIZER INC-2017222850

PATIENT
  Age: 64 Year
  Sex: Female

DRUGS (1)
  1. IBRANCE [Suspect]
     Active Substance: PALBOCICLIB
     Indication: BREAST CANCER FEMALE
     Dosage: 100 MG, CYCLIC  [DAILY FOR 21 DAYS]
     Route: 048
     Dates: start: 20170125

REACTIONS (3)
  - Fatigue [Unknown]
  - Pruritus [Unknown]
  - Amnesia [Unknown]
